FAERS Safety Report 13061264 (Version 1)
Quarter: 2016Q4

REPORT INFORMATION
  Report Type: Spontaneous
  Country: FR (occurrence: FR)
  Receive Date: 20161226
  Receipt Date: 20161226
  Transmission Date: 20170207
  Serious: Yes (Other)
  Sender: FDA-Public Use
  Company Number: FR-ROCHE-1870448

PATIENT
  Sex: Female

DRUGS (10)
  1. XOLAIR [Suspect]
     Active Substance: OMALIZUMAB
     Route: 058
     Dates: start: 20160707, end: 20160707
  2. SYMBICORT [Concomitant]
     Active Substance: BUDESONIDE\FORMOTEROL FUMARATE DIHYDRATE
     Indication: ASTHMA
     Dosage: UNK
     Route: 048
  3. XOLAIR [Suspect]
     Active Substance: OMALIZUMAB
     Route: 058
     Dates: start: 20160509, end: 20160509
  4. XOLAIR [Suspect]
     Active Substance: OMALIZUMAB
     Route: 058
     Dates: start: 20160903, end: 20160903
  5. XOLAIR [Suspect]
     Active Substance: OMALIZUMAB
     Route: 058
     Dates: start: 20161107, end: 20161107
  6. MONTELUKAST [Concomitant]
     Active Substance: MONTELUKAST SODIUM
     Indication: ASTHMA
     Dosage: UNK
     Route: 048
  7. XOLAIR [Suspect]
     Active Substance: OMALIZUMAB
     Route: 058
     Dates: start: 20160804, end: 20160804
  8. XOLAIR [Suspect]
     Active Substance: OMALIZUMAB
     Route: 058
     Dates: start: 20161007, end: 20161007
  9. XOLAIR [Suspect]
     Active Substance: OMALIZUMAB
     Indication: ASTHMA
     Route: 058
     Dates: start: 20160411, end: 20160411
  10. XOLAIR [Suspect]
     Active Substance: OMALIZUMAB
     Route: 058
     Dates: start: 20160606, end: 20160606

REACTIONS (22)
  - Dysphonia [Unknown]
  - Palpitations [Recovered/Resolved]
  - Joint stiffness [Unknown]
  - Rash [Unknown]
  - Weight increased [Unknown]
  - Limb discomfort [Unknown]
  - Chills [Unknown]
  - Nasal congestion [Unknown]
  - Fatigue [Not Recovered/Not Resolved]
  - Pruritus [Unknown]
  - General physical health deterioration [Not Recovered/Not Resolved]
  - Headache [Not Recovered/Not Resolved]
  - Injection site oedema [Unknown]
  - Dyspnoea [Unknown]
  - Vomiting [Unknown]
  - Cough [Not Recovered/Not Resolved]
  - Feeling abnormal [Not Recovered/Not Resolved]
  - Alopecia [Unknown]
  - Arthralgia [Not Recovered/Not Resolved]
  - Myalgia [Not Recovered/Not Resolved]
  - Nausea [Unknown]
  - Somnolence [Not Recovered/Not Resolved]
